FAERS Safety Report 6117813-0 (Version None)
Quarter: 2009Q1

REPORT INFORMATION
  Report Type: 
  Country: None (occurrence: None)
  Receive Date: 20090314
  Receipt Date: 20090129
  Transmission Date: 20090719
  Serious: No
  Sender: FDA-Public Use
  Company Number: US-ABBOTT-09P-163-0500863-00

PATIENT
  Sex: Male
  Weight: 93.07 kg

DRUGS (4)
  1. HUMIRA [Suspect]
     Indication: BEHCET'S SYNDROME
     Route: 058
     Dates: start: 20080901, end: 20081201
  2. HUMIRA [Suspect]
     Route: 058
     Dates: start: 20090101
  3. PREDNISONE [Concomitant]
     Indication: BEHCET'S SYNDROME
  4. XANAX [Concomitant]
     Indication: ANXIETY
     Dosage: AS NEEDED 2/MO

REACTIONS (2)
  - NASOPHARYNGITIS [None]
  - SINUSITIS [None]
